FAERS Safety Report 10682050 (Version 1)
Quarter: 2014Q4

REPORT INFORMATION
  Report Type: Spontaneous
  Country: US (occurrence: None)
  Receive Date: 20141229
  Receipt Date: 20141229
  Transmission Date: 20150529
  Serious: Yes (Disabling)
  Sender: FDA-Public Use
  Company Number: None

PATIENT
  Age: 91 Year
  Sex: Female
  Weight: 38.56 kg

DRUGS (1)
  1. DONEPEZIL 5 MG [Suspect]
     Active Substance: DONEPEZIL
     Indication: DEMENTIA
     Dosage: 1-5MG TABLET
     Route: 048
     Dates: start: 20141225, end: 20141225

REACTIONS (4)
  - Nausea [None]
  - Fatigue [None]
  - Vertigo [None]
  - Vomiting [None]

NARRATIVE: CASE EVENT DATE: 20141225
